FAERS Safety Report 5263953-8 (Version None)
Quarter: 2007Q1

REPORT INFORMATION
  Report Type: 
  Country: None (occurrence: None)
  Receive Date: 20061213
  Receipt Date: 20051118
  Transmission Date: 20070707
  Serious: Yes (Other)
  Sender: FDA-Public Use
  Company Number: 2005UW15330

PATIENT
  Age: 58 Year
  Sex: Female
  Weight: 83.46 kg

DRUGS (5)
  1. IRESSA [Suspect]
     Indication: LUNG NEOPLASM MALIGNANT
     Dates: start: 20040101
  2. VITAMINS [Concomitant]
  3. PAIN PILL [Concomitant]
  4. MEGESTROL ACETATE [Concomitant]
  5. NORVASC [Concomitant]

REACTIONS (5)
  - COUGH [None]
  - DIARRHOEA [None]
  - DIZZINESS [None]
  - PRODUCTIVE COUGH [None]
  - RASH [None]
